FAERS Safety Report 4422386-4 (Version None)
Quarter: 2004Q3

REPORT INFORMATION
  Report Type: 
  Country: None (occurrence: None)
  Receive Date: 20040804
  Receipt Date: 20040713
  Transmission Date: 20050211
  Serious: Yes (Hospitalization)
  Sender: FDA-Public Use
  Company Number: USA040670729

PATIENT
  Age: 74 Year
  Sex: Female
  Weight: 44 kg

DRUGS (3)
  1. HUMULIN U [Suspect]
     Indication: BLOOD GLUCOSE INCREASED
     Dosage: 0.75 U DAY
  2. METOCLOPRAMIDE HYDROCHLORIDE [Concomitant]
  3. SYNTHROID [Concomitant]

REACTIONS (2)
  - BLOOD GLUCOSE INCREASED [None]
  - COLITIS ISCHAEMIC [None]
